FAERS Safety Report 20020631 (Version 1)
Quarter: 2021Q4

REPORT INFORMATION
  Report Type: Spontaneous
  Country: NO (occurrence: NO)
  Receive Date: 20211101
  Receipt Date: 20211101
  Transmission Date: 20220303
  Serious: Yes (Hospitalization)
  Sender: FDA-Public Use
  Company Number: None

PATIENT
  Age: 30 Year
  Sex: Female
  Weight: 95 kg

DRUGS (4)
  1. SAXENDA [Suspect]
     Active Substance: LIRAGLUTIDE
     Indication: Weight control
     Dosage: UNK
     Route: 058
     Dates: start: 20210905
  2. SAXENDA [Suspect]
     Active Substance: LIRAGLUTIDE
     Dosage: 2.4 MG (DOSE INCREASED)
     Route: 058
     Dates: end: 20210926
  3. LAMICTAL [Concomitant]
     Active Substance: LAMOTRIGINE
     Indication: Epilepsy
     Dosage: 250
  4. COD LIVER OIL [Concomitant]
     Active Substance: COD LIVER OIL
     Dosage: UNK

REACTIONS (8)
  - Hypersensitivity [Recovered/Resolved]
  - Seizure [Recovered/Resolved]
  - Dizziness [Unknown]
  - Erythema [Unknown]
  - Tremor [Unknown]
  - Burning sensation [Unknown]
  - Throat tightness [Unknown]
  - Erythema [Unknown]

NARRATIVE: CASE EVENT DATE: 20210926
